FAERS Safety Report 5318605-2 (Version None)
Quarter: 2007Q1

REPORT INFORMATION
  Report Type: 
  Country: None (occurrence: None)
  Receive Date: 20070130
  Receipt Date: 20061023
  Transmission Date: 20070707
  Serious: No
  Sender: FDA-Public Use
  Company Number: 200618791

PATIENT
  Age: 57 Year
  Sex: Female

DRUGS (13)
  1. KETEK [Suspect]
     Indication: EAR INFECTION
     Dosage: 400 MG BID
     Dates: start: 20061017, end: 20061019
  2. KETEK [Suspect]
     Indication: SINUSITIS
     Dosage: 400 MG BID
     Dates: start: 20061017, end: 20061019
  3. PANCREATIN (LIPRAM /00014701/) [Concomitant]
  4. POTASSIUM ACETATE [Concomitant]
  5. MAGNESIUM SULFATE [Concomitant]
  6. CALCIUM CHLORIDE [Concomitant]
  7. LOPERAMIDE HYDROCHLORIDE (IMODIUM /00384302/) [Concomitant]
  8. ATROPINE SULFATE, DIPHENOXYLATE HYDROCHLORIDE (LOMOTIL /00034001/) [Concomitant]
  9. BENTYL [Concomitant]
  10. VITAMIN B NOS (VITAMIN B NOS) [Concomitant]
  11. ASCORBIC ACID (VITAMIN C) [Concomitant]
  12. ZINC [Concomitant]
  13. PARACETAMOL, HYDROCODONE BITARTRATE (VICODIN) [Concomitant]

REACTIONS (1)
  - ABDOMINAL PAIN UPPER [None]
